FAERS Safety Report 6041124-5 (Version None)
Quarter: 2009Q1

REPORT INFORMATION
  Report Type: 
  Country: None (occurrence: None)
  Receive Date: 20090116
  Receipt Date: 20080828
  Transmission Date: 20090719
  Serious: No
  Sender: FDA-Public Use
  Company Number: US-BRISTOL-MYERS SQUIBB COMPANY-14318521

PATIENT

DRUGS (1)
  1. ABILIFY [Suspect]

REACTIONS (12)
  - ANOREXIA [None]
  - COORDINATION ABNORMAL [None]
  - DIZZINESS [None]
  - DROOLING [None]
  - DYSPHAGIA [None]
  - FALL [None]
  - FEELING ABNORMAL [None]
  - INSOMNIA [None]
  - PAROSMIA [None]
  - TREMOR [None]
  - VISUAL ACUITY REDUCED [None]
  - WEIGHT DECREASED [None]
